FAERS Safety Report 10249511 (Version 2)
Quarter: 2014Q2

REPORT INFORMATION
  Report Type: Report from Study
  Country: US (occurrence: US)
  Receive Date: 20140620
  Receipt Date: 20140620
  Transmission Date: 20141212
  Serious: Yes (Life-Threatening)
  Sender: FDA-Public Use
  Company Number: US-BEH-2012031431

PATIENT
  Age: 70 Year
  Sex: Female
  Weight: 66.4 kg

DRUGS (9)
  1. BERINERT [Suspect]
     Indication: HEREDITARY ANGIOEDEMA
     Dosage: 4 ML/MIN (TOTAL DOSE 28 ML)
     Route: 042
     Dates: start: 20120123, end: 20120123
  2. CELEBREX [Concomitant]
     Route: 048
  3. VICODIN [Concomitant]
  4. ANCEF [Concomitant]
  5. ZOFRAN [Concomitant]
  6. DANAZOL [Concomitant]
     Indication: HEREDITARY ANGIOEDEMA
     Route: 048
  7. DANAZOL [Concomitant]
     Dosage: 200 MG BID 5 DAYS PRE-INVASIVE PROCEDURES AND 5 DAYS POST
     Route: 048
  8. BENICAR [Concomitant]
     Dosage: 1 TABLET IN PM
     Route: 048
  9. XARELTO [Concomitant]

REACTIONS (4)
  - Fat embolism [Recovered/Resolved]
  - Hemiplegia [Recovered/Resolved]
  - Aphasia [Recovered/Resolved]
  - VIIth nerve paralysis [Recovered/Resolved]
